FAERS Safety Report 25644552 (Version 1)
Quarter: 2025Q3

REPORT INFORMATION
  Report Type: Spontaneous
  Country: US (occurrence: None)
  Receive Date: 20250804
  Receipt Date: 20250804
  Transmission Date: 20251020
  Serious: No
  Sender: FDA-CTU
  Company Number: None

PATIENT
  Age: 65 Year
  Sex: Female

DRUGS (1)
  1. TALTZ [Suspect]
     Active Substance: IXEKIZUMAB
     Indication: Psoriasis
     Dosage: INJECT 80MG (1 PEN)  SUBCUTANEOUSLY EVERY 2 WEEKS AT WEEKS 4-12   AS DIRECTED
     Route: 058
     Dates: start: 202506

REACTIONS (1)
  - Neoplasm malignant [None]
